FAERS Safety Report 9444000 (Version 1)
Quarter: 2013Q3

REPORT INFORMATION
  Report Type: Spontaneous
  Country: FR (occurrence: FR)
  Receive Date: 20130807
  Receipt Date: 20130807
  Transmission Date: 20140515
  Serious: Yes (Hospitalization)
  Sender: FDA-Public Use
  Company Number: FR-ROCHE-1258216

PATIENT
  Age: 69 Year
  Sex: Female

DRUGS (13)
  1. COPEGUS [Suspect]
     Indication: HEPATITIS C
     Route: 048
     Dates: start: 20120213
  2. PEGASYS [Suspect]
     Indication: HEPATITIS C
     Route: 058
     Dates: start: 20120213
  3. INCIVO [Suspect]
     Indication: HEPATITIS C
     Route: 048
     Dates: start: 20120213, end: 201205
  4. EPREX [Concomitant]
     Indication: ANAEMIA PROPHYLAXIS
     Route: 058
  5. TELFAST (FRANCE) [Concomitant]
     Indication: URTICARIA CHRONIC
     Route: 048
     Dates: start: 20120406
  6. ZYLORIC [Concomitant]
     Indication: HYPERURICAEMIA
     Route: 048
     Dates: start: 20120406, end: 20120703
  7. LEXOMIL [Concomitant]
     Indication: SLEEP DISORDER
     Route: 048
     Dates: start: 20120314, end: 20120703
  8. PROCTOLOG (FRANCE) [Concomitant]
     Indication: ANORECTAL DISCOMFORT
     Route: 054
     Dates: start: 20120314, end: 20120703
  9. DELURSAN [Concomitant]
     Route: 048
  10. TOCO [Concomitant]
     Indication: VITAMIN E DEFICIENCY
     Route: 048
  11. ALDACTONE (FRANCE) [Concomitant]
     Indication: HYPERTENSION
     Route: 048
  12. CELECTOL [Concomitant]
     Indication: HYPERTENSION
     Route: 048
  13. LEVOTHYROX [Concomitant]
     Indication: HYPOTHYROIDISM
     Route: 048

REACTIONS (1)
  - Bone marrow failure [Recovered/Resolved]
